FAERS Safety Report 18215680 (Version 1)
Quarter: 2020Q3

REPORT INFORMATION
  Report Type: Spontaneous
  Country: US (occurrence: US)
  Receive Date: 20200831
  Receipt Date: 20200831
  Transmission Date: 20201103
  Serious: Yes (Other)
  Sender: FDA-Public Use
  Company Number: US-ACCORD-197929

PATIENT
  Age: 34 Year
  Sex: Male

DRUGS (3)
  1. PREDNISONE. [Concomitant]
     Active Substance: PREDNISONE
     Indication: VOGT-KOYANAGI-HARADA DISEASE
  2. MYCOPHENOLIC ACID. [Suspect]
     Active Substance: MYCOPHENOLIC ACID
     Indication: VOGT-KOYANAGI-HARADA DISEASE
  3. PREDNISOLONE. [Concomitant]
     Active Substance: PREDNISOLONE
     Indication: VOGT-KOYANAGI-HARADA DISEASE
     Dosage: STRENGTH 1%, THREE TIMES DAILY IN BOTH EYES.

REACTIONS (5)
  - Condition aggravated [Recovered/Resolved]
  - Drug ineffective [Unknown]
  - Drug-induced liver injury [Unknown]
  - Liver function test increased [Unknown]
  - Off label use [Unknown]
